FAERS Safety Report 11269054 (Version 7)
Quarter: 2015Q3

REPORT INFORMATION
  Report Type: Report from Study
  Country: US (occurrence: US)
  Receive Date: 20150710
  Receipt Date: 20150923
  Transmission Date: 20151125
  Serious: Yes (Death, Hospitalization, Other)
  Sender: FDA-Public Use
  Company Number: 2015SGN01104

PATIENT

DRUGS (83)
  1. PROVENTIL                          /00139501/ [Concomitant]
     Dosage: 2.5 MG, Q6HR
     Route: 050
  2. PROVENTIL                          /00139501/ [Concomitant]
     Dosage: 2.5 MG, Q6HR
     Route: 050
  3. PROVENTIL                          /00139501/ [Concomitant]
     Dosage: 2.5 MG, Q6HR
     Route: 050
  4. CLARITIN [Concomitant]
     Active Substance: LORATADINE
     Dosage: 10 MG, QD
     Route: 048
  5. DEBROX [Concomitant]
     Active Substance: CARBAMIDE PEROXIDE
     Dosage: UNK
     Route: 050
  6. DEBROX [Concomitant]
     Active Substance: CARBAMIDE PEROXIDE
     Dosage: UNK
     Route: 050
  7. DEBROX [Concomitant]
     Active Substance: CARBAMIDE PEROXIDE
     Dosage: UNK
     Route: 050
  8. FLEET ENEMA ADULTO [Concomitant]
     Dosage: UNK
     Route: 065
  9. LANTUS [Concomitant]
     Active Substance: INSULIN GLARGINE
     Dosage: UNK
  10. OCEAN NASAL [Concomitant]
     Dosage: UNK
     Route: 045
  11. ZOFRAN [Concomitant]
     Active Substance: ONDANSETRON HYDROCHLORIDE
     Indication: NAUSEA
     Dosage: 8 MG, UNK
     Route: 048
  12. REFRESH                            /00007001/ [Concomitant]
     Dosage: 1 UNK, UNK
     Route: 050
  13. REFRESH                            /00007001/ [Concomitant]
     Dosage: 1 UNK, UNK
     Route: 050
  14. REFRESH                            /00007001/ [Concomitant]
     Dosage: UNK
     Route: 050
  15. REFRESH                            /00007001/ [Concomitant]
     Dosage: UNK
     Route: 050
  16. ARTIFICIAL TEARS                   /00222401/ [Concomitant]
     Dosage: UNK
  17. TYLENOL [Concomitant]
     Active Substance: ACETAMINOPHEN
     Dosage: UNK
     Route: 065
  18. CIPRO                              /00697201/ [Concomitant]
     Active Substance: CIPROFLOXACIN
     Dosage: 1 UNK, UNK
     Route: 047
  19. CIPRO                              /00697201/ [Concomitant]
     Active Substance: CIPROFLOXACIN
     Dosage: 500 MG, BID
     Route: 048
  20. DEBROX [Concomitant]
     Active Substance: CARBAMIDE PEROXIDE
     Dosage: UNK
     Route: 050
  21. DEBROX [Concomitant]
     Active Substance: CARBAMIDE PEROXIDE
     Dosage: UNK
     Route: 050
  22. HUMALOG [Concomitant]
     Active Substance: INSULIN LISPRO
     Dosage: UNK
     Route: 065
  23. LANTUS [Concomitant]
     Active Substance: INSULIN GLARGINE
     Dosage: UNK
  24. LISINOPRIL. [Concomitant]
     Active Substance: LISINOPRIL
     Dosage: UNK
     Route: 065
  25. MYCOSTATIN [Concomitant]
     Active Substance: NYSTATIN
     Dosage: 5 ML, Q6HR
     Route: 048
  26. ONGLYZA [Concomitant]
     Active Substance: SAXAGLIPTIN HYDROCHLORIDE
     Dosage: UNK
     Route: 065
  27. REFRESH                            /00007001/ [Concomitant]
     Dosage: UNK
     Route: 050
  28. VITAMIN D3 [Concomitant]
     Active Substance: CHOLECALCIFEROL
  29. ZOVIRAX [Concomitant]
     Active Substance: ACYCLOVIR
     Dosage: 400 MG, BID
     Route: 048
  30. PROVENTIL                          /00139501/ [Concomitant]
     Dosage: 2.5 MG, Q6HR
     Route: 050
  31. CIPRO                              /00697201/ [Concomitant]
     Active Substance: CIPROFLOXACIN
     Dosage: 500 MG, BID
     Route: 048
  32. CIPRO                              /00697201/ [Concomitant]
     Active Substance: CIPROFLOXACIN
     Dosage: 500 MG, BID
     Route: 048
  33. CIPRO                              /00697201/ [Concomitant]
     Active Substance: CIPROFLOXACIN
     Dosage: 500 MG, BID
     Route: 048
  34. CIPRO                              /00697201/ [Concomitant]
     Active Substance: CIPROFLOXACIN
     Dosage: UNK
     Route: 047
  35. VITAMIN B12 [Concomitant]
     Active Substance: CYANOCOBALAMIN
     Dosage: UNK
     Route: 065
  36. TOPROL XL [Concomitant]
     Active Substance: METOPROLOL SUCCINATE
     Dosage: 50 MG, UNK
     Route: 048
  37. MULTIVITAMINS [Concomitant]
     Active Substance: VITAMINS
     Dosage: UNK
     Route: 065
  38. OCEAN NASAL [Concomitant]
     Dosage: UNK
     Route: 045
  39. ROXICODONE [Concomitant]
     Active Substance: OXYCODONE HYDROCHLORIDE
     Indication: PAIN
     Dosage: 5 MG, Q8HR
     Route: 048
  40. PLAVIX [Concomitant]
     Active Substance: CLOPIDOGREL BISULFATE
     Dosage: 75 MG, QD
     Route: 048
  41. REFRESH                            /00007001/ [Concomitant]
     Dosage: 1 UNK, UNK
     Route: 050
  42. ARTIFICIAL TEARS                   /00222401/ [Concomitant]
     Dosage: UNK
  43. VINBLASTINE [Suspect]
     Active Substance: VINBLASTINE
     Indication: HODGKIN^S DISEASE
     Dosage: 10.9 MG, UNK
     Route: 042
     Dates: start: 20141204, end: 20150528
  44. ASPIRIN                            /00002701/ [Concomitant]
     Active Substance: ASPIRIN
     Dosage: 81 MG, QD
     Route: 048
  45. LANTUS [Concomitant]
     Active Substance: INSULIN GLARGINE
     Dosage: UNK UNK, QD
     Route: 050
  46. OCEAN NASAL [Concomitant]
     Dosage: UNK
     Route: 045
  47. SENNA [Concomitant]
     Active Substance: SENNA LEAF\SENNOSIDES\SENNOSIDES A AND B
     Dosage: UNK
     Route: 065
  48. ARTIFICIAL TEARS                   /00222401/ [Concomitant]
     Dosage: UNK
  49. ARTIFICIAL TEARS                   /00222401/ [Concomitant]
     Dosage: UNK
  50. PROVENTIL                          /00139501/ [Concomitant]
     Dosage: 2.5 MG, Q6HR
     Route: 050
  51. CIPRO                              /00697201/ [Concomitant]
     Active Substance: CIPROFLOXACIN
     Dosage: 1 UNK, UNK
     Route: 047
  52. DEBROX [Concomitant]
     Active Substance: CARBAMIDE PEROXIDE
     Dosage: UNK
     Route: 050
  53. OCEAN NASAL [Concomitant]
     Dosage: UNK
     Route: 045
  54. OCUVITE [Concomitant]
     Active Substance: VITAMINS
     Dosage: 1 DF, QD
     Route: 048
  55. BRENTUXIMAB VEDOTIN [Suspect]
     Active Substance: BRENTUXIMAB VEDOTIN
     Indication: HODGKIN^S DISEASE
     Dosage: 78 MG, UNK
     Route: 042
     Dates: start: 20141204, end: 20150528
  56. CIPRO                              /00697201/ [Concomitant]
     Active Substance: CIPROFLOXACIN
     Dosage: 1 UNK, UNK
     Route: 047
  57. CIPRO                              /00697201/ [Concomitant]
     Active Substance: CIPROFLOXACIN
     Dosage: 500 MG, BID
     Route: 048
  58. CIPRO                              /00697201/ [Concomitant]
     Active Substance: CIPROFLOXACIN
     Dosage: UNK
     Route: 047
  59. CIPRO                              /00697201/ [Concomitant]
     Active Substance: CIPROFLOXACIN
     Dosage: 500 MG, BID
     Route: 048
  60. CIPRO                              /00697201/ [Concomitant]
     Active Substance: CIPROFLOXACIN
     Dosage: UNK
     Route: 047
  61. LANTUS [Concomitant]
     Active Substance: INSULIN GLARGINE
     Route: 050
  62. MILK OF MAGNESIA [Concomitant]
     Active Substance: MAGNESIUM HYDROXIDE
     Dosage: UNK
     Route: 065
  63. OCEAN NASAL [Concomitant]
     Dosage: UNK
     Route: 045
  64. OCEAN NASAL [Concomitant]
     Dosage: UNK
     Route: 045
  65. REFRESH                            /00007001/ [Concomitant]
     Dosage: UNK
     Route: 050
  66. TIMOLOL. [Concomitant]
     Active Substance: TIMOLOL
     Dosage: UNK
     Route: 065
  67. TRAMADOL. [Concomitant]
     Active Substance: TRAMADOL
     Dosage: UNK
     Route: 065
  68. ARTIFICIAL TEARS                   /00222401/ [Concomitant]
     Dosage: UNK
  69. DACARBAZINE. [Suspect]
     Active Substance: DACARBAZINE
     Indication: HODGKIN^S DISEASE
     Dosage: 682.5 MG, UNK
     Route: 042
     Dates: start: 20141204, end: 20150528
  70. PROVENTIL                          /00139501/ [Concomitant]
     Dosage: 2.5 MG, Q6HR
     Route: 050
  71. CIPRO                              /00697201/ [Concomitant]
     Active Substance: CIPROFLOXACIN
     Dosage: 500 MG, BID
     Route: 048
  72. DEBROX [Concomitant]
     Active Substance: CARBAMIDE PEROXIDE
     Dosage: UNK
     Route: 050
  73. ARTIFICIAL TEARS                   /00222401/ [Concomitant]
     Dosage: UNK
  74. PROCHLORPERAZINE. [Concomitant]
     Active Substance: PROCHLORPERAZINE
     Dosage: 10 MG, UNK
     Route: 048
  75. DOXORUBICIN [Suspect]
     Active Substance: DOXORUBICIN
     Indication: HODGKIN^S DISEASE
     Dosage: 46 MG, UNK
     Route: 042
     Dates: start: 20141204, end: 20150528
  76. PROVENTIL                          /00139501/ [Concomitant]
     Dosage: 2.5 MG, Q6HR
     Route: 050
  77. LIPITOR [Concomitant]
     Active Substance: ATORVASTATIN CALCIUM
     Dosage: 40 MG, QD
  78. CIPRO                              /00697201/ [Concomitant]
     Active Substance: CIPROFLOXACIN
     Dosage: UNK
     Route: 047
  79. DULCOLAX (BISACODYL) [Concomitant]
     Active Substance: BISACODYL
     Dosage: UNK
     Route: 065
  80. LANTUS [Concomitant]
     Active Substance: INSULIN GLARGINE
     Route: 050
  81. OCEAN NASAL [Concomitant]
     Dosage: UNK
     Route: 045
  82. ARTIFICIAL TEARS                   /00222401/ [Concomitant]
     Dosage: UNK
  83. AVELOX [Concomitant]
     Active Substance: MOXIFLOXACIN HYDROCHLORIDE
     Dosage: 400 MG, QD
     Route: 048

REACTIONS (3)
  - Febrile neutropenia [Unknown]
  - VIIth nerve paralysis [Not Recovered/Not Resolved]
  - Cerebral haemorrhage [Fatal]

NARRATIVE: CASE EVENT DATE: 20150608
